FAERS Safety Report 5151580-2 (Version None)
Quarter: 2006Q4

REPORT INFORMATION
  Report Type: 
  Country: None (occurrence: None)
  Receive Date: 20061115
  Receipt Date: 20050616
  Transmission Date: 20070319
  Serious: No
  Sender: FDA-Public Use
  Company Number: US-BRISTOL-MYERS SQUIBB COMPANY-13006754

PATIENT
  Sex: Male

DRUGS (1)
  1. SUSTIVA [Suspect]
     Indication: HIV INFECTION
     Dates: start: 20050101

REACTIONS (1)
  - PALPITATIONS [None]
